FAERS Safety Report 13824302 (Version 3)
Quarter: 2017Q3

REPORT INFORMATION
  Report Type: Spontaneous
  Country: US (occurrence: US)
  Receive Date: 20170802
  Receipt Date: 20170905
  Transmission Date: 20171127
  Serious: Yes (Other)
  Sender: FDA-Public Use
  Company Number: US-BAYER-2017-146807

PATIENT
  Sex: Female

DRUGS (1)
  1. MIRALAX [Suspect]
     Active Substance: POLYETHYLENE GLYCOL 3350
     Indication: COLONOSCOPY

REACTIONS (4)
  - Faeces hard [Unknown]
  - Product use in unapproved indication [Unknown]
  - Faecaloma [Unknown]
  - Off label use [Unknown]

NARRATIVE: CASE EVENT DATE: 2017
